FAERS Safety Report 5644634-5 (Version None)
Quarter: 2008Q1

REPORT INFORMATION
  Report Type: 
  Country: None (occurrence: None)
  Receive Date: 20080229
  Receipt Date: 20070507
  Transmission Date: 20080703
  Serious: Yes (Life-Threatening, Hospitalization, Other)
  Sender: FDA-Public Use
  Company Number: A0648170A

PATIENT
  Age: 81 Year
  Sex: Female
  Weight: 42.7 kg

DRUGS (8)
  1. VALTREX [Suspect]
     Indication: HERPES ZOSTER
     Dosage: 1G THREE TIMES PER DAY
     Route: 048
     Dates: start: 20070416, end: 20070419
  2. ASPIRIN [Concomitant]
     Dosage: 81MG PER DAY
  3. LISINOPRIL [Concomitant]
     Dosage: 10MG PER DAY
  4. LIPITOR [Concomitant]
     Dosage: 40MG PER DAY
  5. ACTONEL [Concomitant]
     Dosage: 35MG WEEKLY
  6. IRON TABLET [Concomitant]
     Dosage: 325MG PER DAY
  7. VITAMIN D [Concomitant]
  8. CALCIUM [Concomitant]

REACTIONS (3)
  - BLOOD CREATININE INCREASED [None]
  - BLOOD UREA INCREASED [None]
  - RENAL FAILURE [None]
